FAERS Safety Report 12341076 (Version 1)
Quarter: 2016Q2

REPORT INFORMATION
  Report Type: Spontaneous
  Country: US (occurrence: US)
  Receive Date: 20160506
  Receipt Date: 20160506
  Transmission Date: 20160815
  Serious: No
  Sender: FDA-Public Use
  Company Number: US-BAUSCH-BL-2015-031018

PATIENT
  Age: 8 Year
  Sex: Male
  Weight: 28.6 kg

DRUGS (1)
  1. OFLOXACIN OTIC [Suspect]
     Active Substance: OFLOXACIN
     Indication: CONJUNCTIVITIS
     Dosage: IN BOTH EYES
     Route: 047
     Dates: start: 201512, end: 20151228

REACTIONS (3)
  - Eye pain [Recovering/Resolving]
  - Wrong drug administered [Unknown]
  - Ocular hyperaemia [Recovering/Resolving]

NARRATIVE: CASE EVENT DATE: 201512
